FAERS Safety Report 6216959-6 (Version None)
Quarter: 2009Q2

REPORT INFORMATION
  Report Type: 
  Country: None (occurrence: None)
  Receive Date: 20090604
  Receipt Date: 20090521
  Transmission Date: 20091009
  Serious: No
  Sender: FDA-Public Use
  Company Number: 232902K09USA

PATIENT
  Age: 48 Year
  Sex: Female
  Weight: 75 kg

DRUGS (3)
  1. REBIF [Suspect]
     Indication: MULTIPLE SCLEROSIS
     Dosage: 22MCG; 44 MCG;  22 MCG, 3 IN 1 WEEKS MCG, 44 MCG   WEEKS,
     Route: 058
     Dates: start: 20081126, end: 20090501
  2. REBIF [Suspect]
     Indication: MULTIPLE SCLEROSIS
     Dosage: 22MCG; 44 MCG;  22 MCG, 3 IN 1 WEEKS MCG, 44 MCG   WEEKS,
     Route: 058
     Dates: start: 20090501, end: 20090501
  3. REBIF [Suspect]
     Indication: MULTIPLE SCLEROSIS
     Dosage: 22MCG; 44 MCG;  22 MCG, 3 IN 1 WEEKS MCG, 44 MCG   WEEKS,
     Route: 058
     Dates: start: 20090501

REACTIONS (6)
  - FATIGUE [None]
  - FEELING ABNORMAL [None]
  - HEADACHE [None]
  - HYPERTENSION [None]
  - RESPIRATORY TRACT INFECTION [None]
  - VERTIGO [None]
